FAERS Safety Report 8115738-2 (Version None)
Quarter: 2012Q1

REPORT INFORMATION
  Report Type: 
  Country: None (occurrence: None)
  Receive Date: 20120206
  Receipt Date: 20120124
  Transmission Date: 20120608
  Serious: Yes (Other)
  Sender: FDA-Public Use
  Company Number: CA-UCBSA-050374

PATIENT
  Age: 53 Year
  Sex: Female
  Weight: 72.5 kg

DRUGS (15)
  1. CIMZIA [Suspect]
     Route: 058
     Dates: start: 20110110, end: 20110207
  2. PLAQUENIL [Concomitant]
     Indication: RHEUMATOID ARTHRITIS
     Route: 048
     Dates: start: 20101001
  3. VITAMIN D [Concomitant]
     Indication: VITAMIN SUPPLEMENTATION
  4. FOLIC ACID [Concomitant]
     Indication: VITAMIN SUPPLEMENTATION
  5. CALCIUM [Concomitant]
     Indication: MINERAL SUPPLEMENTATION
  6. METHOTREXATE [Concomitant]
     Indication: RHEUMATOID ARTHRITIS
     Route: 058
     Dates: start: 20101001
  7. CRESTOR [Concomitant]
     Indication: BLOOD CHOLESTEROL
  8. PREDNISONE TAB [Concomitant]
     Indication: RHEUMATOID ARTHRITIS
     Route: 048
     Dates: start: 20101001
  9. SYNTHROID [Concomitant]
     Indication: THYROID DISORDER
  10. CIMZIA [Suspect]
     Indication: RHEUMATOID ARTHRITIS
     Route: 058
     Dates: start: 20110221
  11. NEXIUM [Concomitant]
     Indication: GASTRIC DISORDER
  12. BISOPROLOL [Concomitant]
     Indication: HYPERTENSION
  13. CITALOPRAM [Concomitant]
     Indication: DEPRESSION
  14. HUMULIN N [Concomitant]
     Indication: DIABETES MELLITUS
     Dosage: 28 UNIT
     Route: 058
  15. DIOVAN [Concomitant]
     Indication: HYPERTENSION

REACTIONS (1)
  - MASS [None]
